FAERS Safety Report 25182167 (Version 1)
Quarter: 2025Q2

REPORT INFORMATION
  Report Type: Spontaneous
  Country: US (occurrence: US)
  Receive Date: 20250410
  Receipt Date: 20250410
  Transmission Date: 20250716
  Serious: No
  Sender: KINIKSA PHARMACEUTICALS
  Company Number: US-Kiniksa Pharmaceuticals Ltd.-2024KPU000219

PATIENT
  Age: 64 Year
  Sex: Female

DRUGS (2)
  1. ARCALYST [Suspect]
     Active Substance: RILONACEPT
     Indication: Pericarditis
     Route: 058
     Dates: start: 20240219
  2. ARCALYST [Suspect]
     Active Substance: RILONACEPT
     Dosage: 2 ML
     Route: 058

REACTIONS (10)
  - Injection site pain [Recovered/Resolved]
  - Injection site reaction [Unknown]
  - Injection site pruritus [Unknown]
  - Injection site swelling [Unknown]
  - Injection site erythema [Unknown]
  - Injection site rash [Unknown]
  - Skin discolouration [Unknown]
  - Injection site pain [Unknown]
  - Pain [Unknown]
  - Neck mass [Unknown]

NARRATIVE: CASE EVENT DATE: 20240219
